FAERS Safety Report 10682280 (Version 1)
Quarter: 2014Q4

REPORT INFORMATION
  Report Type: Spontaneous
  Country: GB (occurrence: None)
  Receive Date: 20141224
  Receipt Date: 20141224
  Transmission Date: 20150529
  Serious: Yes (Hospitalization)
  Sender: FDA-Public Use
  Company Number: 20142692

PATIENT
  Age: 83 Year
  Sex: Female

DRUGS (1)
  1. METOJECT PEN (METHOTREXATE DISODIUM) [Suspect]
     Active Substance: METHOTREXATE SODIUM

REACTIONS (2)
  - Fall [None]
  - Hip fracture [None]
